FAERS Safety Report 22232586 (Version 1)
Quarter: 2023Q2

REPORT INFORMATION
  Report Type: Spontaneous
  Country: US (occurrence: None)
  Receive Date: 20230420
  Receipt Date: 20230420
  Transmission Date: 20230721
  Serious: No
  Sender: FDA-Public Use
  Company Number: US-ROCHE-3064164

PATIENT
  Sex: Male

DRUGS (16)
  1. ESBRIET [Suspect]
     Active Substance: PIRFENIDONE
     Indication: Idiopathic pulmonary fibrosis
     Route: 048
  2. BUDESONIDE [Concomitant]
     Active Substance: BUDESONIDE
     Dosage: 1 MG/2 ML
  3. CIPRO [Concomitant]
     Active Substance: CIPROFLOXACIN HYDROCHLORIDE
  4. ECHINACEA [Concomitant]
     Active Substance: ECHINACEA, UNSPECIFIED
  5. HERBALS [Concomitant]
     Active Substance: HERBALS
  6. FISH OIL [Concomitant]
     Active Substance: FISH OIL
  7. IVERMECTIN [Concomitant]
     Active Substance: IVERMECTIN
  8. LEVALBUTEROL [Concomitant]
     Active Substance: LEVALBUTEROL
  9. MUCUS RELIEF [Concomitant]
     Active Substance: GUAIFENESIN
  10. OXYCODONE [Concomitant]
     Active Substance: OXYCODONE
  11. PREDNISONE [Concomitant]
     Active Substance: PREDNISONE
  12. STIOLTO RESPIMAT [Concomitant]
     Active Substance: OLODATEROL HYDROCHLORIDE\TIOTROPIUM BROMIDE MONOHYDRATE
  13. VITAMIN C [Concomitant]
     Active Substance: ASCORBIC ACID
  14. ERGOCALCIFEROL [Concomitant]
     Active Substance: ERGOCALCIFEROL
  15. ZINC [Concomitant]
     Active Substance: ZINC
  16. ZYRTEC [Concomitant]
     Active Substance: CETIRIZINE HYDROCHLORIDE

REACTIONS (1)
  - Rash [Not Recovered/Not Resolved]
